FAERS Safety Report 5759914-2 (Version None)
Quarter: 2008Q2

REPORT INFORMATION
  Report Type: 
  Country: None (occurrence: None)
  Receive Date: 20080605
  Receipt Date: 20080528
  Transmission Date: 20081010
  Serious: Yes (Hospitalization, Other)
  Sender: FDA-Public Use
  Company Number: GB-BRISTOL-MYERS SQUIBB COMPANY-14216246

PATIENT
  Age: 56 Year
  Sex: Male

DRUGS (2)
  1. CYCLOPHOSPHAMIDE [Suspect]
     Dosage: 1G
     Route: 042
  2. MESNA [Suspect]
     Dosage: AND ALSO ORAL 200 MG
     Route: 042

REACTIONS (1)
  - CYSTITIS HAEMORRHAGIC [None]
